FAERS Safety Report 21282085 (Version 1)
Quarter: 2022Q3

REPORT INFORMATION
  Report Type: Spontaneous
  Country: US (occurrence: US)
  Receive Date: 20220901
  Receipt Date: 20220901
  Transmission Date: 20221027
  Serious: No
  Sender: FDA-Public Use
  Company Number: US-ABBVIE-22K-163-4484755-00

PATIENT
  Sex: Female
  Weight: 72.640 kg

DRUGS (10)
  1. HUMIRA [Suspect]
     Active Substance: ADALIMUMAB
     Indication: Rheumatoid arthritis
     Route: 058
     Dates: start: 202203
  2. LISINOPRIL [Concomitant]
     Active Substance: LISINOPRIL
     Indication: Hypertension
  3. MELOXICAM [Concomitant]
     Active Substance: MELOXICAM
     Indication: Antiinflammatory therapy
  4. HYDROCODONE [Concomitant]
     Active Substance: HYDROCODONE
     Indication: Pain
  5. FLUDROCORTISONE [Concomitant]
     Active Substance: FLUDROCORTISONE
     Indication: Cortisol decreased
  6. VITAMIN D [Concomitant]
     Active Substance: VITAMIN D NOS
     Indication: Product used for unknown indication
     Route: 048
  7. GABAPENTIN [Concomitant]
     Active Substance: GABAPENTIN
     Indication: Neuralgia
  8. MODERNA COVID-19 VACCINE [Concomitant]
     Active Substance: ELASOMERAN
     Indication: COVID-19 immunisation
     Dosage: FIRST DOSE/BOOSTER
     Route: 030
     Dates: start: 20210621, end: 20210621
  9. MODERNA COVID-19 VACCINE [Concomitant]
     Active Substance: ELASOMERAN
     Dosage: SECOND DOSE
     Route: 030
     Dates: start: 20210710, end: 20210710
  10. MODERNA COVID-19 VACCINE [Concomitant]
     Active Substance: ELASOMERAN
     Dosage: THIRD DOSE
     Route: 030
     Dates: start: 20220221, end: 20220221

REACTIONS (5)
  - Nausea [Recovering/Resolving]
  - Headache [Recovering/Resolving]
  - Musculoskeletal stiffness [Not Recovered/Not Resolved]
  - Device issue [Not Recovered/Not Resolved]
  - Gait disturbance [Unknown]

NARRATIVE: CASE EVENT DATE: 20220101
